FAERS Safety Report 8801318 (Version 1)
Quarter: 2012Q4

REPORT INFORMATION
  Report Type: 
  Country: IN (occurrence: IN)
  Receive Date: 20120921
  Receipt Date: 20120921
  Transmission Date: 20130627
  Serious: Yes (Hospitalization)
  Sender: FDA-Public Use
  Company Number: IN-JNJFOC-20120905107

PATIENT
  Age: 37 Year
  Sex: Male

DRUGS (5)
  1. TOPIRAMATE [Suspect]
     Indication: MIGRAINE PROPHYLAXIS
     Route: 048
  2. TOPIRAMATE [Suspect]
     Indication: MIGRAINE PROPHYLAXIS
     Route: 048
  3. TOPIRAMATE [Suspect]
     Indication: MIGRAINE PROPHYLAXIS
     Route: 048
  4. VALPROATE SODIUM [Interacting]
     Indication: VOMITING
     Route: 042
  5. VALPROATE SODIUM [Interacting]
     Indication: HEADACHE
     Route: 042

REACTIONS (4)
  - Encephalopathy [Recovered/Resolved]
  - Drug interaction [Unknown]
  - Disorientation [Unknown]
  - Somnolence [Unknown]
